FAERS Safety Report 19407064 (Version 1)
Quarter: 2021Q2

REPORT INFORMATION
  Report Type: Spontaneous
  Country: DE (occurrence: DE)
  Receive Date: 20210611
  Receipt Date: 20210611
  Transmission Date: 20210717
  Serious: Yes (Hospitalization, Other)
  Sender: FDA-Public Use
  Company Number: DE-ANIPHARMA-2021-DE-000117

PATIENT
  Age: 71 Year
  Sex: Female

DRUGS (8)
  1. AMITRIPTYLIN [Suspect]
     Active Substance: AMITRIPTYLINE
     Dosage: 25 MG UNK
     Route: 048
  2. EDOXABAN [Concomitant]
     Active Substance: EDOXABAN TOSYLATE
     Dosage: 60 MG DAILY
     Route: 048
  3. BISOPROLOL [Concomitant]
     Active Substance: BISOPROLOL
     Dosage: 5 MG DAILY
     Route: 048
  4. CANDESARTAN CILEXETIL AND HYDROCHLOROTHIAZIDE [Suspect]
     Active Substance: CANDESARTAN CILEXETIL\HYDROCHLOROTHIAZIDE
     Indication: PRODUCT USED FOR UNKNOWN INDICATION
     Dosage: 16/12.5 MG AT UNKNOWN DOSE AND FREQUENCY
     Route: 048
  5. KALIUMIODID/LEVOTHYROXIN?NATRIUM [Concomitant]
     Dosage: 125 UG DAILY
     Route: 048
  6. PANTOPRAZOL [Concomitant]
     Active Substance: PANTOPRAZOLE SODIUM
     Dosage: 20 MG DAILY
     Route: 048
  7. TORASEMID [Concomitant]
     Active Substance: TORSEMIDE
     Dosage: 5 MG DAILY
     Route: 048
  8. AMIODARON [Suspect]
     Active Substance: AMIODARONE
     Dosage: 20 MG UNK
     Route: 048

REACTIONS (2)
  - Vomiting [Unknown]
  - Angina pectoris [Unknown]
